FAERS Safety Report 9469965 (Version 1)
Quarter: 2013Q3

REPORT INFORMATION
  Report Type: Spontaneous
  Country: US (occurrence: None)
  Receive Date: 20130820
  Receipt Date: 20130820
  Transmission Date: 20140515
  Serious: Yes (Life-Threatening)
  Sender: FDA-Public Use
  Company Number: None

PATIENT
  Age: 67 Year
  Sex: Male
  Weight: 91 kg

DRUGS (18)
  1. TEFLARO [Suspect]
     Indication: BLOOD CULTURE POSITIVE
     Route: 042
     Dates: start: 20130810, end: 20130810
  2. TEFLARO [Suspect]
     Indication: STAPHYLOCOCCUS TEST POSITIVE
     Route: 042
     Dates: start: 20130810, end: 20130810
  3. ACETAMINOPHEN [Concomitant]
  4. BUPROPION XL [Concomitant]
  5. CALCIUM [Concomitant]
  6. CLONAZEPAM [Concomitant]
  7. CYMBALTA [Concomitant]
  8. NEURONTIN [Concomitant]
  9. HEPARIN [Concomitant]
  10. MULTIVITAMIN [Concomitant]
  11. PLAQUENIL [Concomitant]
  12. TOPROL XL [Concomitant]
  13. ONDANSETRON [Concomitant]
  14. OXYCODONE [Concomitant]
  15. PANTOPRAZOLE [Concomitant]
  16. PREDNISONE [Concomitant]
  17. FLOMAX [Concomitant]
  18. ZOLPIDEM [Concomitant]

REACTIONS (4)
  - Confusional state [None]
  - Unresponsive to stimuli [None]
  - Apnoea [None]
  - Respiratory disorder [None]
